FAERS Safety Report 6509150-7 (Version None)
Quarter: 2009Q4

REPORT INFORMATION
  Report Type: 
  Country: None (occurrence: None)
  Receive Date: 20091221
  Receipt Date: 20091216
  Transmission Date: 20100525
  Serious: Yes (Death)
  Sender: FDA-Public Use
  Company Number: AU-ABBOTT-09P-008-0501839-00

PATIENT
  Sex: Male

DRUGS (4)
  1. SEVOFLURANE [Suspect]
     Indication: GENERAL ANAESTHESIA
  2. PARACETAMOL [Suspect]
     Indication: DRUG USE FOR UNKNOWN INDICATION
  3. FENTANYL [Suspect]
     Indication: DRUG USE FOR UNKNOWN INDICATION
  4. MIDAZOLAM HCL [Suspect]
     Indication: DRUG USE FOR UNKNOWN INDICATION

REACTIONS (2)
  - HEPATIC FAILURE [None]
  - HEPATITIS ACUTE [None]
